FAERS Safety Report 6269093-3 (Version None)
Quarter: 2009Q3

REPORT INFORMATION
  Report Type: 
  Country: None (occurrence: None)
  Receive Date: 20090715
  Receipt Date: 20090630
  Transmission Date: 20100115
  Serious: Yes (Disabling, Other)
  Sender: FDA-Public Use
  Company Number: US-MERCK-0806USA01832

PATIENT
  Age: 73 Year
  Sex: Female
  Weight: 91 kg

DRUGS (1)
  1. FOSAMAX [Suspect]
     Indication: OSTEOPOROSIS
     Route: 048
     Dates: start: 19960101, end: 20060501

REACTIONS (35)
  - ADVERSE DRUG REACTION [None]
  - ANAEMIA [None]
  - ANXIETY [None]
  - ARTHRALGIA [None]
  - CATARACT [None]
  - CHEST X-RAY ABNORMAL [None]
  - DENTAL CARIES [None]
  - DEPRESSION [None]
  - DIZZINESS [None]
  - DRUG INEFFECTIVE [None]
  - FALL [None]
  - FISTULA [None]
  - FISTULA DISCHARGE [None]
  - HERPES ZOSTER [None]
  - HUMERUS FRACTURE [None]
  - HYPERLIPIDAEMIA [None]
  - HYPERTENSION [None]
  - HYPERTENSIVE HEART DISEASE [None]
  - JOINT INJURY [None]
  - LEFT VENTRICULAR HYPERTROPHY [None]
  - LIMB INJURY [None]
  - MUSCLE SPASMS [None]
  - MYALGIA [None]
  - NODULE [None]
  - OSTEOMYELITIS CHRONIC [None]
  - OSTEONECROSIS [None]
  - OTITIS MEDIA [None]
  - PALPITATIONS [None]
  - PYREXIA [None]
  - RENAL FAILURE CHRONIC [None]
  - SINUSITIS [None]
  - THROAT TIGHTNESS [None]
  - TOOTH DISORDER [None]
  - TOOTH INFECTION [None]
  - WEIGHT DECREASED [None]
